FAERS Safety Report 7635924-5 (Version None)
Quarter: 2011Q3

REPORT INFORMATION
  Report Type: 
  Country: None (occurrence: None)
  Receive Date: 20110726
  Receipt Date: 20110712
  Transmission Date: 20111222
  Serious: Yes (Death)
  Sender: FDA-Public Use
  Company Number: NZ-MYLANLABS-2011S1014911

PATIENT
  Age: 4 Year

DRUGS (3)
  1. THIOPENTAL SODIUM [Suspect]
     Indication: INDUCTION OF ANAESTHESIA
     Route: 065
  2. NITRIC OXIDE [Concomitant]
     Route: 055
  3. KETAMINE HCL [Suspect]
     Indication: INDUCTION OF ANAESTHESIA
     Route: 042

REACTIONS (1)
  - VENTRICULAR FIBRILLATION [None]
